FAERS Safety Report 5096904-X (Version None)
Quarter: 2006Q3

REPORT INFORMATION
  Report Type: 
  Country: None (occurrence: None)
  Receive Date: 20060906
  Receipt Date: 20060801
  Transmission Date: 20061208
  Serious: Yes (Other)
  Sender: FDA-Public Use
  Company Number: PHBS2006JP11619

PATIENT
  Age: 61 Year
  Sex: Female
  Weight: 57 kg

DRUGS (5)
  1. AREDIA [Suspect]
     Indication: METASTASES TO BONE
     Dosage: 90 MG, QMO
     Route: 042
     Dates: start: 20051027, end: 20060519
  2. ZOMETA [Suspect]
     Indication: METASTASES TO BONE
     Dosage: 4 MG, UNK
     Route: 042
     Dates: start: 20060616, end: 20060714
  3. BISPHONAL [Suspect]
     Dosage: 10 MG/DAY
     Route: 042
     Dates: start: 20050101, end: 20051001
  4. ALENDRONATE SODIUM [Concomitant]
     Indication: METASTASES TO BONE
     Route: 065
     Dates: start: 20050401, end: 20051001
  5. TAXOTERE [Concomitant]
     Route: 065
     Dates: start: 20050401

REACTIONS (3)
  - INFLAMMATION OF WOUND [None]
  - OSTEOMYELITIS [None]
  - TOOTH EXTRACTION [None]
